FAERS Safety Report 4844533-2 (Version None)
Quarter: 2005Q4

REPORT INFORMATION
  Report Type: 
  Country: None (occurrence: None)
  Receive Date: 20051130
  Receipt Date: 20051130
  Transmission Date: 20060501
  Serious: Yes (Death)
  Sender: FDA-Public Use
  Company Number: None

PATIENT
  Age: 39 Year
  Sex: Male
  Weight: 99.7913 kg

DRUGS (2)
  1. EFFEXOR [Suspect]
     Indication: ANXIETY
     Dosage: INFO NOT CURRENTLY AVAIL CHECK WITH WALGREENS
     Dates: start: 20050923, end: 20051023
  2. EFFEXOR [Suspect]
     Indication: DEPRESSION
     Dosage: INFO NOT CURRENTLY AVAIL CHECK WITH WALGREENS
     Dates: start: 20050923, end: 20051023

REACTIONS (3)
  - COMPLETED SUICIDE [None]
  - INJURY ASPHYXIATION [None]
  - SUICIDAL IDEATION [None]
